FAERS Safety Report 7967285-6 (Version None)
Quarter: 2011Q4

REPORT INFORMATION
  Report Type: 
  Country: None (occurrence: None)
  Receive Date: 20111208
  Receipt Date: 20111208
  Transmission Date: 20120403
  Serious: Yes (Other)
  Sender: FDA-Public Use
  Company Number: None

PATIENT
  Age: 63 Year
  Sex: Female

DRUGS (7)
  1. REVLIMID [Suspect]
     Indication: MULTIPLE MYELOMA
     Dosage: 5 MG DAILY ORALLY
     Route: 048
     Dates: start: 20110601
  2. CALCIUM ACETATE [Concomitant]
  3. EPOETIN [Concomitant]
  4. AMLODIPINE [Concomitant]
  5. ANASTROZOLE [Concomitant]
  6. PROCHLORPERAZINE [Concomitant]
  7. SEVELAMER [Concomitant]

REACTIONS (1)
  - NEUTROPENIA [None]
